FAERS Safety Report 15096750 (Version 2)
Quarter: 2018Q3

REPORT INFORMATION
  Report Type: Spontaneous
  Country: US (occurrence: US)
  Receive Date: 20180702
  Receipt Date: 20180920
  Transmission Date: 20181010
  Serious: Yes (Other)
  Sender: FDA-Public Use
  Company Number: US-IGSA-SR10006012

PATIENT
  Age: 62 Year
  Sex: Female

DRUGS (16)
  1. LASIX [Concomitant]
     Active Substance: FUROSEMIDE
  2. OPANA [Concomitant]
     Active Substance: OXYMORPHONE HYDROCHLORIDE
  3. BENADRYL [Concomitant]
     Active Substance: DIPHENHYDRAMINE HYDROCHLORIDE
     Indication: PREMEDICATION
     Dosage: 25 MG, SINGLE
     Route: 048
  4. GAMUNEX?C [Suspect]
     Active Substance: HUMAN IMMUNOGLOBULIN G
     Dosage: 100 ML, SINGLE
     Dates: start: 20180222
  5. IBUPROFEN. [Concomitant]
     Active Substance: IBUPROFEN
  6. ALBUTEROL                          /00139501/ [Concomitant]
     Active Substance: ALBUTEROL
  7. CLONAZEPAM. [Concomitant]
     Active Substance: CLONAZEPAM
     Indication: PREMEDICATION
     Dosage: 2 MG, SINGLE
  8. TRAZODONE [Concomitant]
     Active Substance: TRAZODONE HYDROCHLORIDE
  9. GAMUNEX?C [Suspect]
     Active Substance: HUMAN IMMUNOGLOBULIN G
     Indication: CHRONIC INFLAMMATORY DEMYELINATING POLYRADICULONEUROPATHY
     Dosage: 70 G, Q.2WK.
     Route: 042
     Dates: start: 20161115
  10. LAMICTAL [Concomitant]
     Active Substance: LAMOTRIGINE
  11. GAMUNEX?C [Suspect]
     Active Substance: HUMAN IMMUNOGLOBULIN G
     Dosage: 50 ML, SINGLE
     Route: 042
     Dates: start: 20180221
  12. GABAPENTIN. [Concomitant]
     Active Substance: GABAPENTIN
  13. METHOCARBAMOL. [Concomitant]
     Active Substance: METHOCARBAMOL
  14. OXYCODONE                          /00045603/ [Concomitant]
     Active Substance: OXYCODONE
  15. GAMUNEX?C [Suspect]
     Active Substance: HUMAN IMMUNOGLOBULIN G
     Dosage: 150 ML, SINGLE
  16. FLEXERIL [Concomitant]
     Active Substance: CYCLOBENZAPRINE HYDROCHLORIDE

REACTIONS (6)
  - Dizziness [Recovered/Resolved]
  - Extraocular muscle paresis [Recovered/Resolved]
  - Eye disorder [Recovered/Resolved]
  - Balance disorder [Recovered/Resolved]
  - Fall [Recovered/Resolved]
  - Transient ischaemic attack [Recovered/Resolved]

NARRATIVE: CASE EVENT DATE: 201803
